FAERS Safety Report 4958074-5 (Version None)
Quarter: 2006Q1

REPORT INFORMATION
  Report Type: 
  Country: None (occurrence: None)
  Receive Date: 20060330
  Receipt Date: 20051003
  Transmission Date: 20060701
  Serious: Yes (Hospitalization, Disabling, Other)
  Sender: FDA-Public Use
  Company Number: US-MERCK-0510USA01031

PATIENT
  Age: 61 Year
  Sex: Male
  Weight: 120 kg

DRUGS (2)
  1. VIOXX [Suspect]
     Indication: ARTHRITIS
     Route: 048
     Dates: start: 20000101, end: 20040101
  2. NAPROXEN [Concomitant]
     Route: 065

REACTIONS (10)
  - ASTHENIA [None]
  - CARDIAC MURMUR [None]
  - CAROTID ARTERY OCCLUSION [None]
  - CATARACT [None]
  - CHEST PAIN [None]
  - DIZZINESS [None]
  - DYSPNOEA [None]
  - RENAL FAILURE [None]
  - RETINAL VEIN OCCLUSION [None]
  - TENDONITIS [None]
